FAERS Safety Report 15489096 (Version 3)
Quarter: 2018Q4

REPORT INFORMATION
  Report Type: Report from Study
  Country: MX (occurrence: MX)
  Receive Date: 20181011
  Receipt Date: 20181030
  Transmission Date: 20190205
  Serious: Yes (Hospitalization, Other)
  Sender: FDA-Public Use
  Company Number: MX-UCBSA-2018044877

PATIENT
  Age: 5 Year
  Sex: Male
  Weight: 19 kg

DRUGS (3)
  1. LEVETIRACETAM. [Suspect]
     Active Substance: LEVETIRACETAM
     Dosage: 5 ML, 2X/DAY (BID)
     Dates: start: 201810
  2. LEVETIRACETAM. [Suspect]
     Active Substance: LEVETIRACETAM
     Indication: EPILEPSY
     Dosage: 360 MG, 2X/DAY (BID)
     Route: 048
     Dates: start: 201803, end: 201810
  3. LEVETIRACETAM. [Suspect]
     Active Substance: LEVETIRACETAM
     Dosage: 52.6 MG/KG/DAY
     Dates: start: 20181004

REACTIONS (6)
  - Status epilepticus [Recovered/Resolved]
  - Partial seizures [Recovering/Resolving]
  - Irritability [Not Recovered/Not Resolved]
  - Overdose [Unknown]
  - Psychomotor hyperactivity [Not Recovered/Not Resolved]
  - Off label use [Unknown]

NARRATIVE: CASE EVENT DATE: 201803
